FAERS Safety Report 15320066 (Version 3)
Quarter: 2018Q4

REPORT INFORMATION
  Report Type: Spontaneous
  Country: US (occurrence: US)
  Receive Date: 20180827
  Receipt Date: 20181121
  Transmission Date: 20190204
  Serious: Yes (Other)
  Sender: FDA-Public Use
  Company Number: US-PFIZER INC-2018340475

PATIENT
  Age: 70 Year
  Sex: Female

DRUGS (1)
  1. EUCRISA [Suspect]
     Active Substance: CRISABOROLE
     Indication: DERMATITIS ATOPIC
     Dosage: 1 DF, 2X/DAY [1 APPLICATION BID INDEFINITELY]
     Route: 061
     Dates: start: 20180213, end: 20180801

REACTIONS (8)
  - Infection [Recovered/Resolved]
  - Condition aggravated [Unknown]
  - Drug hypersensitivity [Recovered/Resolved]
  - Skin exfoliation [Not Recovered/Not Resolved]
  - Erythema [Unknown]
  - Staphylococcal skin infection [Recovered/Resolved]
  - Periorbital cellulitis [Unknown]
  - Burning sensation [Unknown]

NARRATIVE: CASE EVENT DATE: 2018
